FAERS Safety Report 6181938-4 (Version None)
Quarter: 2009Q2

REPORT INFORMATION
  Report Type: 
  Country: None (occurrence: None)
  Receive Date: 20090506
  Receipt Date: 20090423
  Transmission Date: 20091009
  Serious: Yes (Other)
  Sender: FDA-Public Use
  Company Number: KP-GENENTECH-280610

PATIENT
  Age: 40 Year
  Sex: Male

DRUGS (1)
  1. BEVACIZUMAB [Suspect]
     Indication: DIABETIC RETINOPATHY
     Dosage: 2.5 MG, UNK
     Route: 031

REACTIONS (1)
  - MACULOPATHY [None]
